FAERS Safety Report 11762006 (Version 1)
Quarter: 2015Q4

REPORT INFORMATION
  Report Type: Spontaneous
  Country: FR (occurrence: FR)
  Receive Date: 20151120
  Receipt Date: 20151120
  Transmission Date: 20160304
  Serious: Yes (Life-Threatening)
  Sender: FDA-Public Use
  Company Number: FR-PFIZER INC-2015395031

PATIENT
  Age: 49 Year
  Sex: Male

DRUGS (12)
  1. GARDENAL /00023201/ [Suspect]
     Active Substance: PHENOBARBITAL
     Indication: TOXICITY TO VARIOUS AGENTS
     Dosage: 150 MG, 1X/DAY
     Route: 048
  2. AMLOR [Suspect]
     Active Substance: AMLODIPINE BESYLATE
     Indication: TOXICITY TO VARIOUS AGENTS
     Dosage: 5 MG, 1X/DAY
     Route: 048
  3. AMLOR [Suspect]
     Active Substance: AMLODIPINE BESYLATE
     Dosage: 16 DF, SINGLE
     Route: 048
     Dates: start: 20151102, end: 20151102
  4. STILNOX [Concomitant]
     Active Substance: ZOLPIDEM TARTRATE
     Dosage: 10 MG, 1X/DAY
  5. LAMALINE [Suspect]
     Active Substance: ACETAMINOPHEN\CAFFEINE\OPIUM
     Dosage: 28 DF, SINGLE
     Route: 048
     Dates: start: 20151102, end: 20151102
  6. GARDENAL /00023201/ [Suspect]
     Active Substance: PHENOBARBITAL
     Dosage: 20 DF, SINGLE
     Route: 048
     Dates: start: 20151102, end: 20151102
  7. CITALOPRAM HYDROCHLORIDE [Suspect]
     Active Substance: CITALOPRAM HYDROCHLORIDE
     Indication: TOXICITY TO VARIOUS AGENTS
     Dosage: 20 MG, 1X/DAY
     Route: 048
  8. OXYCONTIN [Suspect]
     Active Substance: OXYCODONE HYDROCHLORIDE
     Indication: TOXICITY TO VARIOUS AGENTS
     Dosage: UNK
     Route: 048
  9. OXYCONTIN [Suspect]
     Active Substance: OXYCODONE HYDROCHLORIDE
     Dosage: 28 DF, SINGLE
     Route: 048
     Dates: start: 20151102, end: 20151102
  10. BROMAZEPAM [Concomitant]
     Active Substance: BROMAZEPAM
     Dosage: 9 MG, 1X/DAY
  11. LAMALINE [Suspect]
     Active Substance: ACETAMINOPHEN\CAFFEINE\OPIUM
     Indication: TOXICITY TO VARIOUS AGENTS
     Dosage: 2 DF, 3X/DAY
     Route: 048
  12. CITALOPRAM HYDROCHLORIDE [Suspect]
     Active Substance: CITALOPRAM HYDROCHLORIDE
     Dosage: 14 DF, SINGLE
     Route: 048
     Dates: start: 20151102, end: 20151102

REACTIONS (3)
  - Intentional overdose [Recovered/Resolved]
  - Coma [Recovered/Resolved]
  - Acute respiratory failure [Recovered/Resolved]

NARRATIVE: CASE EVENT DATE: 20151102
